FAERS Safety Report 5612832-2 (Version None)
Quarter: 2008Q1

REPORT INFORMATION
  Report Type: 
  Country: None (occurrence: None)
  Receive Date: 20080204
  Receipt Date: 20080129
  Transmission Date: 20080703
  Serious: Yes (Other)
  Sender: FDA-Public Use
  Company Number: GB-WYE-G00971108

PATIENT
  Age: 34 Year
  Sex: Male
  Weight: 76 kg

DRUGS (3)
  1. IBUPROFEN [Suspect]
     Dates: start: 20080108, end: 20080109
  2. PARACETAMOL [Concomitant]
     Dosage: UNKNOWN
     Route: 048
  3. LEMSIP [Concomitant]
     Dosage: UNKNOWN
     Route: 048

REACTIONS (2)
  - EYE PAIN [None]
  - EYE SWELLING [None]
